FAERS Safety Report 22275662 (Version 1)
Quarter: 2023Q2

REPORT INFORMATION
  Report Type: Other
  Country: None (occurrence: TR)
  Receive Date: 20230502
  Receipt Date: 20230502
  Transmission Date: 20230721
  Serious: Yes (Other)
  Sender: FDA-Public Use
  Company Number: TR-Breckenridge Pharmaceutical, Inc.-2141048

PATIENT
  Age: 81 Year
  Sex: Male

DRUGS (1)
  1. IMATINIB [Suspect]
     Active Substance: IMATINIB

REACTIONS (4)
  - Inclusion body myositis [Unknown]
  - Limb immobilisation [Unknown]
  - Weight decreased [Unknown]
  - Muscular weakness [None]
